FAERS Safety Report 14655764 (Version 2)
Quarter: 2018Q2

REPORT INFORMATION
  Report Type: Spontaneous
  Country: US (occurrence: US)
  Receive Date: 20180319
  Receipt Date: 20180625
  Transmission Date: 20180711
  Serious: No
  Sender: FDA-Public Use
  Company Number: US-SUNOVION-2018SUN000934

PATIENT
  Sex: Female

DRUGS (4)
  1. WELLBUTRIN [Concomitant]
     Active Substance: BUPROPION HYDROCHLORIDE
  2. LATUDA [Suspect]
     Active Substance: LURASIDONE HYDROCHLORIDE
     Indication: BIPOLAR DISORDER
  3. ZYPREXA [Concomitant]
     Active Substance: OLANZAPINE
  4. NEURONTIN [Concomitant]
     Active Substance: GABAPENTIN

REACTIONS (4)
  - Malaise [Unknown]
  - Drug ineffective [Unknown]
  - Hypersensitivity [Unknown]
  - Infection [Unknown]
